FAERS Safety Report 8761061 (Version 1)
Quarter: 2012Q4

REPORT INFORMATION
  Report Type: 
  Country: US (occurrence: US)
  Receive Date: 20120829
  Receipt Date: 20120829
  Transmission Date: 20130627
  Serious: Yes (Other)
  Sender: FDA-Public Use
  Company Number: US-BAYER-2012-089491

PATIENT

DRUGS (4)
  1. ALEVE CAPLET/TABLET,MIDOL EXTENDED RELIEF CAPLET [Suspect]
     Dosage: UNK
  2. MOTRIN [Concomitant]
  3. CODEINE [Concomitant]
  4. ANTIBIOTICS [Concomitant]

REACTIONS (4)
  - Pyrexia [Unknown]
  - Otorrhoea [Unknown]
  - Crying [Unknown]
  - Epistaxis [Unknown]
